FAERS Safety Report 23286641 (Version 1)
Quarter: 2023Q4

REPORT INFORMATION
  Report Type: Spontaneous
  Country: US (occurrence: US)
  Receive Date: 20231212
  Receipt Date: 20231212
  Transmission Date: 20240110
  Serious: No
  Sender: FDA-Public Use
  Company Number: US-SUN PHARMACEUTICAL INDUSTRIES LTD-2022R1-364014

PATIENT
  Sex: Female

DRUGS (1)
  1. DILTIAZEM [Suspect]
     Active Substance: DILTIAZEM
     Indication: Product used for unknown indication
     Dosage: 120 MILLIGRAM
     Route: 048

REACTIONS (4)
  - Product use complaint [Unknown]
  - Product quality issue [Unknown]
  - Poor quality product administered [Unknown]
  - Product packaging quantity issue [Unknown]
